FAERS Safety Report 9895571 (Version 2)
Quarter: 2014Q1

REPORT INFORMATION
  Report Type: Spontaneous
  Country: US (occurrence: US)
  Receive Date: 20140213
  Receipt Date: 20140213
  Transmission Date: 20141002
  Serious: No
  Sender: FDA-Public Use
  Company Number: US-BRISTOL-MYERS SQUIBB COMPANY-17294117

PATIENT
  Age: 61 Year
  Sex: Female

DRUGS (3)
  1. ORENCIA [Suspect]
     Dosage: LAST INFUSION WAS ON 28-DEC-2012
     Route: 042
  2. TIAZAC ER CAPS [Concomitant]
  3. LASIX [Concomitant]

REACTIONS (3)
  - Headache [Not Recovered/Not Resolved]
  - Therapeutic response delayed [Unknown]
  - Restless legs syndrome [Unknown]
